FAERS Safety Report 6425431-X (Version None)
Quarter: 2009Q4

REPORT INFORMATION
  Report Type: 
  Country: None (occurrence: None)
  Receive Date: 20091103
  Receipt Date: 20091030
  Transmission Date: 20100525
  Serious: Yes (Death, Hospitalization)
  Sender: FDA-Public Use
  Company Number: JP-EISAI INC.-E2020-05097-SPO-JP

PATIENT
  Sex: Female

DRUGS (1)
  1. ARICEPT [Suspect]
     Indication: DEMENTIA ALZHEIMER'S TYPE
     Dosage: UNKNOWN
     Route: 048

REACTIONS (4)
  - BRAIN STEM INFARCTION [None]
  - RESPIRATORY ARREST [None]
  - SALIVARY HYPERSECRETION [None]
  - VOMITING [None]
